FAERS Safety Report 12832537 (Version 1)
Quarter: 2016Q4

REPORT INFORMATION
  Report Type: Spontaneous
  Country: GB (occurrence: GB)
  Receive Date: 20161010
  Receipt Date: 20161010
  Transmission Date: 20170207
  Serious: Yes (Hospitalization)
  Sender: FDA-Public Use
  Company Number: GB-TEVA-699489ACC

PATIENT
  Age: 96 Year
  Sex: Female

DRUGS (6)
  1. CLOPIDOGREL [Concomitant]
     Active Substance: CLOPIDOGREL BISULFATE
  2. TRIMETHOPRIM. [Concomitant]
     Active Substance: TRIMETHOPRIM
  3. IRBESARTAN. [Suspect]
     Active Substance: IRBESARTAN
     Dosage: 150 MILLIGRAM DAILY; MORNING.
     Route: 048
  4. ATORVASTATIN [Concomitant]
     Active Substance: ATORVASTATIN
  5. AMLODIPINE [Suspect]
     Active Substance: AMLODIPINE BESYLATE
     Dosage: 5 MILLIGRAM DAILY;
     Route: 048
  6. BENDROFLUMETHIAZIDE [Suspect]
     Active Substance: BENDROFLUMETHIAZIDE
     Dosage: 2.5 MILLIGRAM DAILY;
     Route: 048

REACTIONS (2)
  - Hyponatraemia [Unknown]
  - Hypotension [Unknown]
